FAERS Safety Report 12266040 (Version 2)
Quarter: 2016Q2

REPORT INFORMATION
  Report Type: Spontaneous
  Country: GB (occurrence: GB)
  Receive Date: 20160413
  Receipt Date: 20160418
  Transmission Date: 20160815
  Serious: Yes (Life-Threatening, Hospitalization)
  Sender: FDA-Public Use
  Company Number: PHHY2016GB046993

PATIENT
  Age: 44 Year
  Sex: Male
  Weight: 82 kg

DRUGS (13)
  1. CLONAZEPAM. [Suspect]
     Active Substance: CLONAZEPAM
     Indication: AGITATION
     Dosage: IN FOUR DOSES
     Route: 048
     Dates: start: 20160217
  2. EPILIM [Suspect]
     Active Substance: VALPROATE SODIUM
     Indication: HYPOMANIA
     Route: 048
     Dates: start: 20160217
  3. ANTIBIOTICS [Concomitant]
     Active Substance: UNSPECIFIED INGREDIENT
     Indication: PRODUCT USED FOR UNKNOWN INDICATION
     Route: 065
  4. INNOHEP [Concomitant]
     Active Substance: TINZAPARIN SODIUM
     Indication: PRODUCT USED FOR UNKNOWN INDICATION
     Route: 065
  5. FLUCLOXACILLIN [Concomitant]
     Active Substance: FLUCLOXACILLIN
     Indication: PRODUCT USED FOR UNKNOWN INDICATION
     Route: 065
     Dates: start: 20160401
  6. OMEGA 3//FISH OIL [Concomitant]
     Indication: PRODUCT USED FOR UNKNOWN INDICATION
     Route: 065
  7. ANTIHISTAMINES [Concomitant]
     Active Substance: ANTIHISTAMINES NOS
     Indication: PRODUCT USED FOR UNKNOWN INDICATION
     Route: 065
  8. HALOPERIDOL. [Concomitant]
     Active Substance: HALOPERIDOL
     Indication: PRODUCT USED FOR UNKNOWN INDICATION
     Route: 065
  9. PHENERGAN [Suspect]
     Active Substance: PROMETHAZINE HYDROCHLORIDE
     Indication: AGITATION
     Route: 048
     Dates: start: 20160217
  10. REDOXON MULTIVITAMIN 1 [Concomitant]
     Indication: PRODUCT USED FOR UNKNOWN INDICATION
     Route: 065
  11. OLANZAPINE. [Suspect]
     Active Substance: OLANZAPINE
     Indication: HYPOMANIA
     Dosage: 10 MG, QD
     Route: 048
     Dates: start: 20160217
  12. PROMETHAZINE [Suspect]
     Active Substance: PROMETHAZINE\PROMETHAZINE HYDROCHLORIDE
     Indication: PRODUCT USED FOR UNKNOWN INDICATION
     Route: 048
     Dates: start: 20160217
  13. ASPIRIN 81 [Concomitant]
     Active Substance: ASPIRIN
     Indication: PRODUCT USED FOR UNKNOWN INDICATION
     Route: 065

REACTIONS (12)
  - Drug interaction [Unknown]
  - Localised infection [Unknown]
  - Rash maculo-papular [Unknown]
  - Liver injury [Not Recovered/Not Resolved]
  - Aggression [Not Recovered/Not Resolved]
  - Oedema peripheral [Unknown]
  - Pruritus [Unknown]
  - Cerebrovascular accident [Unknown]
  - Drug hypersensitivity [Not Recovered/Not Resolved]
  - Reaction to drug excipients [Unknown]
  - Breathing-related sleep disorder [Unknown]
  - Verbal abuse [Not Recovered/Not Resolved]

NARRATIVE: CASE EVENT DATE: 20160217
